FAERS Safety Report 4613470-0 (Version None)
Quarter: 2005Q1

REPORT INFORMATION
  Report Type: 
  Country: None (occurrence: None)
  Receive Date: 20050321
  Receipt Date: 20050309
  Transmission Date: 20050727
  Serious: Yes (Death, Other)
  Sender: FDA-Public Use
  Company Number: JP-BRISTOL-MYERS SQUIBB COMPANY-12891297

PATIENT
  Age: 60 Year
  Sex: Female

DRUGS (4)
  1. PARAPLATIN [Suspect]
     Indication: UTERINE CANCER
     Route: 042
  2. PARAPLATIN [Suspect]
     Indication: OVARIAN CANCER
     Route: 042
  3. TAXOL [Suspect]
     Indication: UTERINE CANCER
     Route: 042
  4. TAXOL [Suspect]
     Indication: OVARIAN CANCER
     Route: 042

REACTIONS (4)
  - BLUE TOE SYNDROME [None]
  - DISSEMINATED INTRAVASCULAR COAGULATION [None]
  - MALIGNANT NEOPLASM PROGRESSION [None]
  - PHLEBOTHROMBOSIS [None]
